FAERS Safety Report 14213004 (Version 1)
Quarter: 2017Q4

REPORT INFORMATION
  Report Type: Spontaneous
  Country: US (occurrence: US)
  Receive Date: 20171122
  Receipt Date: 20171122
  Transmission Date: 20180321
  Serious: No
  Sender: FDA-Public Use
  Company Number: US-GLAXOSMITHKLINE-US2017177063

PATIENT
  Age: 2 Year
  Sex: Male

DRUGS (1)
  1. CEFTIN [Suspect]
     Active Substance: CEFUROXIME AXETIL
     Indication: ARTHROPOD BITE
     Dosage: UNK
     Route: 048
     Dates: start: 20171106, end: 20171109

REACTIONS (4)
  - Inappropriate schedule of drug administration [Recovered/Resolved]
  - Product storage error [Not Recovered/Not Resolved]
  - Drug administered to patient of inappropriate age [Recovered/Resolved]
  - Rash [Unknown]

NARRATIVE: CASE EVENT DATE: 201711
